FAERS Safety Report 5338788-8 (Version None)
Quarter: 2007Q2

REPORT INFORMATION
  Report Type: 
  Country: None (occurrence: None)
  Receive Date: 20070322
  Receipt Date: 20060410
  Transmission Date: 20071010
  Serious: Yes (Hospitalization)
  Sender: FDA-Public Use
  Company Number: 200610765BCC

PATIENT
  Age: 76 Year
  Sex: Female
  Weight: 51.2565 kg

DRUGS (4)
  1. ALEVE [Suspect]
     Indication: ARTHRALGIA
     Dosage: 220-440 MG, ORAL
     Route: 048
  2. VITAMIN CAP [Concomitant]
  3. ACTONEL [Concomitant]
  4. BUFFERIN [Concomitant]

REACTIONS (4)
  - FALL [None]
  - GASTRIC ULCER [None]
  - HAEMATEMESIS [None]
  - NAUSEA [None]
